FAERS Safety Report 24641569 (Version 1)
Quarter: 2024Q4

REPORT INFORMATION
  Report Type: Spontaneous
  Country: GB (occurrence: GB)
  Receive Date: 20241120
  Receipt Date: 20241120
  Transmission Date: 20250115
  Serious: Yes (Life-Threatening, Hospitalization)
  Sender: STRIDES
  Company Number: None

PATIENT
  Age: 82 Year
  Sex: Male

DRUGS (1)
  1. FUROSEMIDE [Suspect]
     Active Substance: FUROSEMIDE
     Indication: Diuretic therapy
     Dosage: LONG-TERM TREATMENT
     Route: 065

REACTIONS (3)
  - Dysphagia [Recovered/Resolved]
  - Hypocalcaemia [None]
  - Hypomagnesaemia [Recovered/Resolved]
